FAERS Safety Report 20327091 (Version 1)
Quarter: 2022Q1

REPORT INFORMATION
  Report Type: Spontaneous
  Country: US (occurrence: US)
  Receive Date: 20220112
  Receipt Date: 20220112
  Transmission Date: 20220423
  Serious: No
  Sender: FDA-Public Use
  Company Number: US-JNJFOC-20220116496

PATIENT

DRUGS (1)
  1. BALVERSA [Suspect]
     Active Substance: ERDAFITINIB
     Indication: Product used for unknown indication
     Dosage: FIRST-LINE THERAPY
     Route: 065

REACTIONS (2)
  - Product prescribing error [Unknown]
  - Off label use [Unknown]
